FAERS Safety Report 6823452 (Version 2)
Quarter: 2014Q1

REPORT INFORMATION
  Report Type: Report from Study
  Country: GB (occurrence: ZA)
  Receive Date: 20081126
  Receipt Date: 20140306
  Transmission Date: 20141002
  Serious: Yes (Hospitalization, Other)
  Sender: FDA-Public Use
  Company Number: GB-BAYER-200826552GPV

PATIENT
  Age: 54 Year
  Sex: Female
  Weight: 37.5 kg

DRUGS (9)
  1. MOXIFLOXACIN ORAL [Suspect]
     Indication: PULMONARY TUBERCULOSIS
     Route: 048
     Dates: start: 20080721, end: 20080916
  2. RIFAMPICIN [Suspect]
     Indication: PULMONARY TUBERCULOSIS
     Route: 048
     Dates: start: 20080721, end: 20080916
  3. PYRAZINAMIDE [Suspect]
     Indication: PULMONARY TUBERCULOSIS
     Route: 048
     Dates: start: 20080721, end: 20080916
  4. PLACEBO [Suspect]
     Indication: PULMONARY TUBERCULOSIS
     Route: 048
     Dates: start: 20080721, end: 20080916
  5. ETHAMBUTOL [Suspect]
     Indication: PULMONARY TUBERCULOSIS
     Route: 048
     Dates: start: 20080721, end: 20080916
  6. RIDAQ [Concomitant]
     Indication: PRODUCT USED FOR UNKNOWN INDICATION
     Dosage: DAILY DOSE 12.5 MG
     Route: 048
     Dates: start: 200805
  7. RIDAQ [Concomitant]
     Indication: PRODUCT USED FOR UNKNOWN INDICATION
     Dosage: DAILY DOSE 25 MG
     Route: 048
     Dates: start: 2008
  8. NORVASC [Concomitant]
     Indication: PRODUCT USED FOR UNKNOWN INDICATION
     Dosage: DAILY DOSE 5 MG
     Route: 048
     Dates: start: 200805
  9. NORVASC [Concomitant]
     Indication: PRODUCT USED FOR UNKNOWN INDICATION
     Dosage: DAILY DOSE 10 MG
     Route: 048
     Dates: start: 2008

REACTIONS (2)
  - Hepatic enzyme increased [Recovered/Resolved]
  - Diabetes mellitus [Not Recovered/Not Resolved]
